FAERS Safety Report 23625967 (Version 1)
Quarter: 2024Q1

REPORT INFORMATION
  Report Type: Spontaneous
  Country: US (occurrence: US)
  Receive Date: 20240313
  Receipt Date: 20240313
  Transmission Date: 20240409
  Serious: Yes (Other)
  Sender: FDA-Public Use
  Company Number: US-SUN PHARMACEUTICAL INDUSTRIES LTD-2024R1-435401

PATIENT
  Age: 16 Year
  Sex: Female

DRUGS (8)
  1. ONDANSETRON [Suspect]
     Active Substance: ONDANSETRON
     Indication: Encephalopathy
     Dosage: UNK
     Route: 065
  2. FOLIC ACID [Suspect]
     Active Substance: FOLIC ACID
     Indication: Encephalopathy
     Dosage: UNK
     Route: 065
  3. FAMOTIDINE [Suspect]
     Active Substance: FAMOTIDINE
     Indication: Encephalopathy
     Dosage: UNK
     Route: 065
  4. PYRIDOXINE [Suspect]
     Active Substance: PYRIDOXINE
     Indication: Encephalopathy
     Dosage: UNK, TID
     Route: 065
  5. DOXYLAMINE SUCCINATE [Suspect]
     Active Substance: DOXYLAMINE SUCCINATE
     Indication: Encephalopathy
     Dosage: UNK UNK, TID
     Route: 065
  6. VITAMIN B6 [Suspect]
     Active Substance: PYRIDOXINE HYDROCHLORIDE
     Indication: Encephalopathy
     Dosage: UNK
     Route: 065
  7. THIAMINE [Suspect]
     Active Substance: THIAMINE
     Indication: Encephalopathy
     Dosage: 500 MILLIGRAM, BID
     Route: 042
  8. THIAMINE [Suspect]
     Active Substance: THIAMINE
     Dosage: 250 MILLIGRAM, BID
     Route: 042

REACTIONS (6)
  - Exposure during pregnancy [Unknown]
  - Tandem gait test [Unknown]
  - Vision blurred [Unknown]
  - Strabismus [Recovering/Resolving]
  - Ophthalmoplegia [Recovering/Resolving]
  - Live birth [Unknown]
